FAERS Safety Report 13247549 (Version 1)
Quarter: 2017Q1

REPORT INFORMATION
  Report Type: Spontaneous
  Country: US (occurrence: US)
  Receive Date: 20170217
  Receipt Date: 20170217
  Transmission Date: 20170428
  Serious: Yes (Other)
  Sender: FDA-Public Use
  Company Number: US-SAOL THERAPEUTICS-2017SAO00132

PATIENT
  Age: 63 Year
  Sex: Female

DRUGS (4)
  1. MORPHINE [Suspect]
     Active Substance: MORPHINE
     Dosage: 5.996 MG, \DAY
     Route: 037
  2. BUPIVACAINE. [Suspect]
     Active Substance: BUPIVACAINE
     Dosage: 8.994 MG, \DAY
     Route: 037
  3. KETAMINE [Suspect]
     Active Substance: KETAMINE
     Dosage: 89.94 MG, \DAY
     Route: 037
  4. LIORESAL [Suspect]
     Active Substance: BACLOFEN
     Indication: PAIN
     Dosage: 239.8 ?G, \DAY
     Route: 037

REACTIONS (3)
  - Device failure [Not Recovered/Not Resolved]
  - Off label use [Unknown]
  - Implant site pain [Recovered/Resolved]

NARRATIVE: CASE EVENT DATE: 20161118
